FAERS Safety Report 17030327 (Version 2)
Quarter: 2021Q1

REPORT INFORMATION
  Report Type: Report from Study
  Country: US (occurrence: US)
  Receive Date: 20191114
  Receipt Date: 20210301
  Transmission Date: 20210419
  Serious: Yes (Hospitalization, Other)
  Sender: FDA-Public Use
  Company Number: US-ROCHE-2462068

PATIENT
  Age: 70 Year
  Sex: Male
  Weight: 71.8 kg

DRUGS (18)
  1. CELEXA [Concomitant]
     Active Substance: CITALOPRAM HYDROBROMIDE
  2. CYANOCOBALAMIN. [Concomitant]
     Active Substance: CYANOCOBALAMIN
  3. PIRFENIDONE. [Suspect]
     Active Substance: PIRFENIDONE
     Route: 048
     Dates: start: 20190829, end: 20200202
  4. ACETAMINOPHEN. [Concomitant]
     Active Substance: ACETAMINOPHEN
  5. NORVASC [Concomitant]
     Active Substance: AMLODIPINE BESYLATE
  6. PIRFENIDONE. [Suspect]
     Active Substance: PIRFENIDONE
     Indication: COMPLICATIONS OF TRANSPLANTED LUNG
     Route: 048
     Dates: start: 20190829, end: 20200202
  7. ELIQUIS [Concomitant]
     Active Substance: APIXABAN
  8. LASIX [Concomitant]
     Active Substance: FUROSEMIDE
  9. ZITHROMAX [Concomitant]
     Active Substance: AZITHROMYCIN DIHYDRATE
  10. DAPSONE. [Concomitant]
     Active Substance: DAPSONE
  11. CELLCEPT [Concomitant]
     Active Substance: MYCOPHENOLATE MOFETIL\MYCOPHENOLATE MOFETIL HYDROCHLORIDE
     Route: 048
  12. DELTASONE [Concomitant]
     Active Substance: PREDNISONE
  13. TUMS EX [Concomitant]
     Active Substance: CALCIUM CARBONATE
  14. VITAMIN D3 [Concomitant]
     Active Substance: CHOLECALCIFEROL
     Dosage: 2000 UNITS
  15. AMOXICILLIN. [Concomitant]
     Active Substance: AMOXICILLIN
  16. TACROLIMUS. [Concomitant]
     Active Substance: TACROLIMUS
  17. AMLODIPINE [Concomitant]
     Active Substance: AMLODIPINE BESYLATE
  18. SINGULAIR [Concomitant]
     Active Substance: MONTELUKAST SODIUM

REACTIONS (7)
  - Pneumonia [Recovered/Resolved]
  - Vomiting [Unknown]
  - Leukocytosis [Unknown]
  - Nausea [Unknown]
  - Diarrhoea [Unknown]
  - Productive cough [Unknown]
  - Clostridium difficile infection [Recovered/Resolved]

NARRATIVE: CASE EVENT DATE: 20191030
